FAERS Safety Report 9302916 (Version 1)
Quarter: 2013Q2

REPORT INFORMATION
  Report Type: Spontaneous
  Country: CH (occurrence: CH)
  Receive Date: 20130522
  Receipt Date: 20130522
  Transmission Date: 20140414
  Serious: Yes (Hospitalization, Other)
  Sender: FDA-Public Use
  Company Number: CH-UCBSA-086043

PATIENT
  Age: 63 Year
  Sex: Female
  Weight: 60 kg

DRUGS (6)
  1. KEPPRA [Suspect]
     Route: 048
     Dates: start: 20130117, end: 20130303
  2. ROCEPHIN [Suspect]
     Route: 040
     Dates: start: 20130214, end: 20130303
  3. TIENAM [Suspect]
     Route: 040
     Dates: start: 2013, end: 2013
  4. FLAGYL [Suspect]
     Dates: start: 20130214, end: 20130303
  5. VANCOMYCIN [Concomitant]
  6. MERONEM [Concomitant]

REACTIONS (6)
  - Leukopenia [Recovered/Resolved]
  - Drug reaction with eosinophilia and systemic symptoms [Recovered/Resolved]
  - Coma hepatic [Recovering/Resolving]
  - Eosinophilia [Recovered/Resolved]
  - Thrombocytopenia [Recovered/Resolved]
  - Blood pressure increased [Unknown]
